FAERS Safety Report 4656123-5 (Version None)
Quarter: 2005Q2

REPORT INFORMATION
  Report Type: 
  Country: None (occurrence: None)
  Receive Date: 20050505
  Receipt Date: 20050428
  Transmission Date: 20051028
  Serious: Yes (Disabling, Congenital Anomaly)
  Sender: FDA-Public Use
  Company Number: 200510314BFR

PATIENT
  Age: 0 Day
  Sex: Female

DRUGS (1)
  1. ADALATE (NIFEDIPINE) [Suspect]
     Indication: TOCOLYSIS
     Dosage: TRANSPLACENTAL
     Route: 064

REACTIONS (2)
  - CONGENITAL HYPOTHYROIDISM [None]
  - DRUG EXPOSURE DURING PREGNANCY [None]
